FAERS Safety Report 4968527-1 (Version None)
Quarter: 2006Q2

REPORT INFORMATION
  Report Type: 
  Country: None (occurrence: None)
  Receive Date: 20060410
  Receipt Date: 20051215
  Transmission Date: 20061013
  Serious: Yes (Hospitalization, Other)
  Sender: FDA-Public Use
  Company Number: AU-AVENTIS-200521017GDDC

PATIENT
  Age: 63 Year
  Sex: Female

DRUGS (12)
  1. ARAVA [Suspect]
     Indication: RHEUMATOID ARTHRITIS
     Route: 048
     Dates: start: 20050214
  2. METHOTREXATE [Concomitant]
     Dosage: DOSE: UNK
  3. MOBIC [Concomitant]
     Indication: OSTEOARTHRITIS
     Route: 048
  4. MOBIC [Concomitant]
     Indication: RHEUMATOID ARTHRITIS
     Route: 048
  5. IRBESARTAN AND HYDROCHLOROTHIAZIDE [Concomitant]
     Indication: HYPERTENSION
     Route: 048
  6. ZOCOR [Concomitant]
     Indication: BLOOD CHOLESTEROL
     Route: 048
     Dates: start: 20000101, end: 20060101
  7. ZINC [Concomitant]
     Dosage: DOSE: UNK
  8. PARIET [Concomitant]
     Route: 048
     Dates: start: 20030701, end: 20060101
  9. IRON [Concomitant]
     Dosage: DOSE: UNK
  10. PROTHIADEN [Concomitant]
     Dosage: DOSE: UNK
  11. PSYLLIUM HUSK [Concomitant]
     Dosage: DOSE: UNK
  12. SALAZOPYRIN [Concomitant]
     Indication: RHEUMATOID ARTHRITIS
     Route: 048
     Dates: start: 20000101, end: 20050101

REACTIONS (7)
  - ANAEMIA [None]
  - CIRCULATORY COLLAPSE [None]
  - DEHYDRATION [None]
  - DIARRHOEA [None]
  - PAIN IN EXTREMITY [None]
  - RENAL FAILURE [None]
  - VIRAL INFECTION [None]
